FAERS Safety Report 7061995-3 (Version None)
Quarter: 2010Q4

REPORT INFORMATION
  Report Type: 
  Country: None (occurrence: None)
  Receive Date: 20101026
  Receipt Date: 20100927
  Transmission Date: 20110411
  Serious: Yes (Death, Hospitalization, Other)
  Sender: FDA-Public Use
  Company Number: PHEH2008US11042

PATIENT
  Sex: Male
  Weight: 80.726 kg

DRUGS (29)
  1. ZOMETA [Suspect]
     Indication: MULTIPLE MYELOMA
     Dosage: 4 MG, QMO
     Route: 042
     Dates: start: 20030101, end: 20060301
  2. AREDIA [Suspect]
  3. COUMADIN [Concomitant]
  4. THALIDOMIDE [Concomitant]
     Dosage: 3 MG, QD
  5. DECADRON [Concomitant]
     Dosage: 4 MG, QD
  6. AMOXICILLIN [Concomitant]
     Dosage: 500 MG, TID
  7. AMOXICILLIN [Concomitant]
     Dosage: 500 MG, UNK
     Dates: start: 20060101
  8. REVLIMID [Concomitant]
  9. DEXAMETHASONE [Concomitant]
     Dosage: 40 MG, QW
  10. DEXAMETHASONE [Concomitant]
     Dosage: 4 MG, UNK
     Dates: start: 20030101
  11. SYNTHROID [Concomitant]
     Dosage: 0.75 MG, UNK
     Dates: start: 20030101
  12. NEXIUM [Concomitant]
     Dosage: 40 MG, UNK
     Dates: start: 20030101
  13. WELCHOL [Concomitant]
  14. CIPRO [Concomitant]
     Dosage: 500 MG, UNK
     Dates: start: 19970101
  15. WARFARIN SODIUM [Concomitant]
     Dosage: 1 MG, UNK
     Dates: start: 20030101
  16. FLUCONAZOLE [Concomitant]
  17. BACTRIM [Concomitant]
  18. NORCO [Concomitant]
  19. OXYTOCIN [Concomitant]
  20. COMPAZINE [Concomitant]
  21. DEXAMETHASONE [Concomitant]
  22. MULTI-VIT [Concomitant]
  23. FENTANYL CITRATE [Concomitant]
  24. BISACODYL [Concomitant]
  25. CHEMOTHERAPEUTICS NOS [Concomitant]
     Indication: NEOPLASM MALIGNANT
  26. DURAGESIC-100 [Concomitant]
  27. VINCRISTINE [Concomitant]
     Indication: MULTIPLE MYELOMA
  28. ADRIAMYCIN PFS [Concomitant]
     Indication: MULTIPLE MYELOMA
  29. RED BLOOD CELLS [Suspect]

REACTIONS (37)
  - ANAEMIA [None]
  - ANXIETY [None]
  - BACK PAIN [None]
  - BARRETT'S OESOPHAGUS [None]
  - BLOOD DISORDER [None]
  - BLOOD PHOSPHORUS DECREASED [None]
  - BONE DISORDER [None]
  - BONE LESION [None]
  - BONE SARCOMA [None]
  - CARDIO-RESPIRATORY ARREST [None]
  - CHEST PAIN [None]
  - CONJUNCTIVAL HAEMORRHAGE [None]
  - DYSPNOEA [None]
  - ERYTHEMA NODOSUM [None]
  - FATIGUE [None]
  - GOITRE [None]
  - HIATUS HERNIA [None]
  - HYPERCALCAEMIA [None]
  - IRRITABILITY [None]
  - MALIGNANT NEOPLASM PROGRESSION [None]
  - MASS [None]
  - MULTIPLE MYELOMA [None]
  - NEOPLASM MALIGNANT [None]
  - NEUROPATHY PERIPHERAL [None]
  - NODULE ON EXTREMITY [None]
  - OEDEMA PERIPHERAL [None]
  - OESOPHAGEAL HYPOMOTILITY [None]
  - OESOPHAGEAL ULCER [None]
  - OSTEOARTHRITIS [None]
  - PANCREATITIS [None]
  - RASH MACULO-PAPULAR [None]
  - RASH PRURITIC [None]
  - SCOLIOSIS [None]
  - STEM CELL TRANSPLANT [None]
  - THYROIDECTOMY [None]
  - TOOTH DISORDER [None]
  - TOOTHACHE [None]
